FAERS Safety Report 21115221 (Version 1)
Quarter: 2022Q3

REPORT INFORMATION
  Report Type: Spontaneous
  Country: CN (occurrence: CN)
  Receive Date: 20220721
  Receipt Date: 20220721
  Transmission Date: 20221027
  Serious: No
  Sender: FDA-Public Use
  Company Number: CN-CSTONE PHARMACEUTICALS (SUZHOU) CO., LTD.-2022CN01064

PATIENT
  Sex: Male

DRUGS (1)
  1. AYVAKIT [Suspect]
     Active Substance: AVAPRITINIB
     Indication: Product used for unknown indication
     Dosage: UNK UNK, UNKNOWN
     Route: 048

REACTIONS (5)
  - Sleep talking [Unknown]
  - Somnambulism [Unknown]
  - Restlessness [Unknown]
  - Disorganised speech [Unknown]
  - Somnolence [Unknown]

NARRATIVE: CASE EVENT DATE: 20220601
